FAERS Safety Report 19516961 (Version 4)
Quarter: 2021Q3

REPORT INFORMATION
  Report Type: Report from Study
  Country: None (occurrence: US)
  Receive Date: 20210711
  Receipt Date: 20210909
  Transmission Date: 20211014
  Serious: Yes (Hospitalization, Other)
  Sender: FDA-Public Use
  Company Number: US-ABBVIE-21K-163-3981066-00

PATIENT
  Age: 39 Year
  Sex: Male

DRUGS (6)
  1. NORTRIPTYLINE [Concomitant]
     Active Substance: NORTRIPTYLINE
     Indication: ANTIDEPRESSANT THERAPY
  2. HUMIRA [Suspect]
     Active Substance: ADALIMUMAB
     Indication: COLITIS ULCERATIVE
     Dosage: CITRATE FREE
     Route: 058
     Dates: start: 20190822
  3. MODERNA COVID?19 VACCINE [Concomitant]
     Active Substance: CX-024414
     Route: 030
     Dates: start: 20210428, end: 20210428
  4. METAXALONE. [Concomitant]
     Active Substance: METAXALONE
     Indication: MUSCLE RELAXANT THERAPY
  5. MODERNA COVID?19 VACCINE [Concomitant]
     Active Substance: CX-024414
     Indication: COVID-19 IMMUNISATION
     Route: 030
     Dates: start: 20210331, end: 20210331
  6. PREDNISONE. [Suspect]
     Active Substance: PREDNISONE
     Indication: PRODUCT USED FOR UNKNOWN INDICATION
     Route: 065

REACTIONS (20)
  - Type 2 diabetes mellitus [Not Recovered/Not Resolved]
  - Disturbance in attention [Recovering/Resolving]
  - Gait disturbance [Recovering/Resolving]
  - Memory impairment [Not Recovered/Not Resolved]
  - Adverse food reaction [Unknown]
  - Insulin resistance [Unknown]
  - Muscle spasms [Unknown]
  - Feeling abnormal [Recovering/Resolving]
  - Muscle strain [Unknown]
  - Sunburn [Unknown]
  - Heart rate increased [Recovered/Resolved]
  - Gastrointestinal inflammation [Unknown]
  - Insomnia [Unknown]
  - Diarrhoea haemorrhagic [Unknown]
  - Clostridium difficile infection [Unknown]
  - Unevaluable event [Unknown]
  - Overweight [Unknown]
  - Weight decreased [Not Recovered/Not Resolved]
  - Hypertension [Unknown]
  - Heart rate increased [Unknown]

NARRATIVE: CASE EVENT DATE: 201909
